FAERS Safety Report 6449779-8 (Version None)
Quarter: 2009Q4

REPORT INFORMATION
  Report Type: 
  Country: None (occurrence: None)
  Receive Date: 20091120
  Receipt Date: 20090225
  Transmission Date: 20100525
  Serious: Yes (Other)
  Sender: FDA-Public Use
  Company Number: US-AMGEN-QUU335740

PATIENT
  Sex: Female

DRUGS (2)
  1. ENBREL [Suspect]
     Indication: RHEUMATOID ARTHRITIS
     Route: 058
     Dates: start: 20000901
  2. LEFLUNOMIDE [Concomitant]
     Route: 048

REACTIONS (4)
  - ASTHENIA [None]
  - DEPRESSION [None]
  - DYSPNOEA [None]
  - INFLUENZA [None]
